FAERS Safety Report 4965716-7 (Version None)
Quarter: 2006Q1

REPORT INFORMATION
  Report Type: 
  Country: None (occurrence: None)
  Receive Date: 20060331
  Receipt Date: 20060324
  Transmission Date: 20060701
  Serious: Yes (Other)
  Sender: FDA-Public Use
  Company Number: NO-2006-006842

PATIENT
  Sex: Female

DRUGS (2)
  1. LEVONORGESTREL [Suspect]
     Dosage: 20 UG/DAY, CONT, INTRA-UTERINE
     Route: 015
     Dates: start: 20051130, end: 20060322
  2. ORIFIL - SLOW RELEASE ^DESITIN^ (VALPROATE SODIUM) [Concomitant]

REACTIONS (4)
  - CONDITION AGGRAVATED [None]
  - DRUG INTERACTION [None]
  - DRUG LEVEL DECREASED [None]
  - GRAND MAL CONVULSION [None]
